FAERS Safety Report 9726819 (Version 1)
Quarter: 2013Q4

REPORT INFORMATION
  Report Type: Spontaneous
  Country: US (occurrence: US)
  Receive Date: 20131203
  Receipt Date: 20131203
  Transmission Date: 20140711
  Serious: No
  Sender: FDA-Public Use
  Company Number: US-NOVEN-13US006494

PATIENT
  Age: 30 Year
  Sex: Male

DRUGS (3)
  1. FENTANYL [Suspect]
     Indication: PAIN MANAGEMENT
     Dosage: 50 UG/HR, UNK
     Route: 062
     Dates: start: 20130319
  2. KLONOPIN [Concomitant]
     Indication: ANXIETY
  3. PERCOCET                           /00446701/ [Concomitant]
     Indication: BREAKTHROUGH PAIN

REACTIONS (5)
  - Hyperhidrosis [Unknown]
  - Withdrawal syndrome [Unknown]
  - Rash generalised [Unknown]
  - Drug administration error [Recovered/Resolved]
  - Product quality issue [Recovered/Resolved]
